FAERS Safety Report 6838615-3 (Version None)
Quarter: 2010Q3

REPORT INFORMATION
  Report Type: 
  Country: None (occurrence: None)
  Receive Date: 20100713
  Receipt Date: 20070619
  Transmission Date: 20110219
  Serious: No
  Sender: FDA-Public Use
  Company Number: US-PFIZER INC-2007050144

PATIENT
  Age: 45 Year
  Sex: Female
  Weight: 55.454 kg

DRUGS (3)
  1. CHANTIX [Suspect]
     Indication: SMOKING CESSATION THERAPY
     Dates: start: 20070601, end: 20070608
  2. VALSARTAN [Concomitant]
  3. LEVOTHYROXINE SODIUM [Concomitant]

REACTIONS (2)
  - PRURITUS [None]
  - URTICARIA [None]
